FAERS Safety Report 5818350-0 (Version None)
Quarter: 2008Q3

REPORT INFORMATION
  Report Type: 
  Country: None (occurrence: None)
  Receive Date: 20080718
  Receipt Date: 20080707
  Transmission Date: 20090109
  Serious: Yes (Hospitalization)
  Sender: FDA-Public Use
  Company Number: B0529434A

PATIENT
  Age: 63 Year
  Sex: Female

DRUGS (3)
  1. PAROXETINE HCL [Suspect]
     Indication: DEPRESSION
  2. METOPROLOL TARTRATE [Suspect]
     Indication: HYPERTENSION
  3. ALPRAZOLAM [Concomitant]

REACTIONS (3)
  - ATRIOVENTRICULAR BLOCK COMPLETE [None]
  - BRADYARRHYTHMIA [None]
  - ELECTROCARDIOGRAM QRS COMPLEX SHORTENED [None]
